FAERS Safety Report 6845944-6 (Version None)
Quarter: 2010Q3

REPORT INFORMATION
  Report Type: 
  Country: None (occurrence: None)
  Receive Date: 20100715
  Receipt Date: 20070829
  Transmission Date: 20110219
  Serious: No
  Sender: FDA-Public Use
  Company Number: US-PFIZER INC-2007073654

PATIENT
  Sex: Female
  Weight: 61.2 kg

DRUGS (5)
  1. CHANTIX [Suspect]
     Indication: SMOKING CESSATION THERAPY
     Dates: start: 20070824
  2. LITHIUM [Concomitant]
  3. CLONAZEPAM [Concomitant]
  4. PREVACID [Concomitant]
  5. TRAZODONE HYDROCHLORIDE [Concomitant]

REACTIONS (1)
  - INSOMNIA [None]
